FAERS Safety Report 8831596 (Version 4)
Quarter: 2013Q4

REPORT INFORMATION
  Report Type: Spontaneous
  Country: US (occurrence: US)
  Receive Date: 20121009
  Receipt Date: 20131107
  Transmission Date: 20140711
  Serious: Yes (Hospitalization, Other)
  Sender: FDA-Public Use
  Company Number: US-009507513-1210USA002343

PATIENT
  Sex: Female
  Weight: 98.87 kg

DRUGS (2)
  1. NUVARING [Suspect]
     Indication: CONTRACEPTION
     Dosage: UNK
     Route: 067
     Dates: start: 2005, end: 200612
  2. NUVARING [Suspect]
     Dosage: UNK
     Route: 067
     Dates: start: 201003, end: 201012

REACTIONS (36)
  - Cholecystectomy [Unknown]
  - Pulmonary embolism [Unknown]
  - Deep vein thrombosis [Recovering/Resolving]
  - Fall [Unknown]
  - Oophorectomy [Unknown]
  - Ovarian cyst [Unknown]
  - C-reactive protein increased [Unknown]
  - Hypercoagulation [Unknown]
  - Varicose vein [Unknown]
  - Depression [Unknown]
  - Incorrect drug administration duration [Unknown]
  - Vaginal discharge [Unknown]
  - Dyspareunia [Unknown]
  - Libido decreased [Unknown]
  - Neck pain [Unknown]
  - Musculoskeletal pain [Unknown]
  - Weight increased [Unknown]
  - Fatigue [Unknown]
  - Menstruation irregular [Unknown]
  - Premenstrual syndrome [Unknown]
  - Muscle spasms [Unknown]
  - Ovarian neoplasm [Unknown]
  - Hypothyroidism [Unknown]
  - Hyperglycaemia [Unknown]
  - Leukocytosis [Unknown]
  - Constipation [Recovered/Resolved]
  - Cholelithiasis [Unknown]
  - Muscle strain [Unknown]
  - Hyperlipidaemia [Unknown]
  - Cardiac murmur [Unknown]
  - Hypertension [Unknown]
  - Anxiety [Unknown]
  - Arthralgia [Unknown]
  - Pyrexia [Unknown]
  - Palpitations [Unknown]
  - Menometrorrhagia [Unknown]
